FAERS Safety Report 7811088-X (Version None)
Quarter: 2011Q4

REPORT INFORMATION
  Report Type: 
  Country: None (occurrence: None)
  Receive Date: 20111013
  Receipt Date: 20111010
  Transmission Date: 20120403
  Serious: Yes (Death, Hospitalization)
  Sender: FDA-Public Use
  Company Number: US-RANBAXY-2011US-49043

PATIENT
  Age: 32 Year
  Sex: Female

DRUGS (1)
  1. ACETAMINOPHEN [Suspect]
     Indication: VIRAL INFECTION
     Dosage: UNK, UNK
     Route: 048

REACTIONS (7)
  - GASTROINTESTINAL HAEMORRHAGE [None]
  - BRADYCARDIA [None]
  - CARDIAC ARREST [None]
  - ACIDOSIS [None]
  - DEATH [None]
  - HYPOTENSION [None]
  - CARDIO-RESPIRATORY ARREST [None]
